FAERS Safety Report 20747802 (Version 2)
Quarter: 2022Q2

REPORT INFORMATION
  Report Type: Spontaneous
  Country: JP (occurrence: JP)
  Receive Date: 20220425
  Receipt Date: 20220520
  Transmission Date: 20220721
  Serious: Yes (Hospitalization, Other)
  Sender: FDA-Public Use
  Company Number: JP-DSJP-DSJ-2022-113736

PATIENT
  Age: 74 Year
  Sex: Female

DRUGS (4)
  1. EDOXABAN TOSYLATE [Suspect]
     Active Substance: EDOXABAN TOSYLATE
     Indication: Pulmonary embolism
     Dosage: 30 MG, QD
     Route: 048
     Dates: start: 20161201, end: 20200513
  2. HEPARIN SODIUM [Suspect]
     Active Substance: HEPARIN SODIUM
     Indication: Disseminated intravascular coagulation
     Dosage: UNK
     Route: 065
     Dates: start: 20200514
  3. UNSPECIFIED INGREDIENT [Concomitant]
     Active Substance: UNSPECIFIED INGREDIENT
     Indication: Sepsis
     Dosage: UNK
     Route: 065
  4. PREDNISOLONE [Concomitant]
     Active Substance: PREDNISOLONE
     Dosage: 50MG/DAY
     Route: 048

REACTIONS (3)
  - Piriformis syndrome [Recovering/Resolving]
  - Haematoma [Recovered/Resolved]
  - Mixed connective tissue disease [Unknown]

NARRATIVE: CASE EVENT DATE: 20200518
